FAERS Safety Report 4960032-1 (Version None)
Quarter: 2006Q1

REPORT INFORMATION
  Report Type: 
  Country: None (occurrence: None)
  Receive Date: 20060331
  Receipt Date: 20051020
  Transmission Date: 20060701
  Serious: Yes (Hospitalization, Disabling, Other)
  Sender: FDA-Public Use
  Company Number: US-MERCK-0510USA08365

PATIENT
  Age: 58 Year
  Sex: Female
  Weight: 66 kg

DRUGS (8)
  1. VIOXX [Suspect]
     Indication: ARTHRITIS
     Route: 048
     Dates: start: 19991119, end: 19991130
  2. VIOXX [Suspect]
     Indication: PAIN
     Route: 048
     Dates: start: 19991119, end: 19991130
  3. ULTRAM [Concomitant]
     Route: 065
  4. VASOTEC RPD [Concomitant]
     Route: 065
  5. LASIX [Concomitant]
     Route: 065
  6. ASPIRIN [Concomitant]
     Route: 065
  7. PREMARIN [Concomitant]
     Route: 065
  8. BENTYL [Concomitant]
     Route: 065

REACTIONS (8)
  - ARTHROPATHY [None]
  - CARDIAC DISORDER [None]
  - CARDIAC FAILURE [None]
  - CEREBROVASCULAR ACCIDENT [None]
  - CHILLS [None]
  - COUGH [None]
  - EMOTIONAL DISORDER [None]
  - MUSCULOSKELETAL DISORDER [None]
